FAERS Safety Report 11622671 (Version 1)
Quarter: 2015Q4

REPORT INFORMATION
  Report Type: Spontaneous
  Country: US (occurrence: None)
  Receive Date: 20151009
  Receipt Date: 20151009
  Transmission Date: 20160304
  Serious: Yes (Hospitalization)
  Sender: FDA-Public Use
  Company Number: None

PATIENT
  Age: 23 Year
  Sex: Female

DRUGS (1)
  1. ORTHO TRI CYCLEN [Suspect]
     Active Substance: ETHINYL ESTRADIOL\NORGESTIMATE
     Indication: CONTRACEPTION
     Dates: start: 20131110, end: 20131129

REACTIONS (7)
  - Cholestasis [None]
  - Fatigue [None]
  - Pruritus [None]
  - Weight decreased [None]
  - Nausea [None]
  - Liver injury [None]
  - Vomiting [None]

NARRATIVE: CASE EVENT DATE: 20131204
